FAERS Safety Report 18210302 (Version 1)
Quarter: 2020Q3

REPORT INFORMATION
  Report Type: Spontaneous
  Country: IN (occurrence: GB)
  Receive Date: 20200829
  Receipt Date: 20200829
  Transmission Date: 20201103
  Serious: Yes (Death, Life-Threatening, Hospitalization, Other)
  Sender: FDA-Public Use
  Company Number: GB-ELI_LILLY_AND_COMPANY-GB202008008702

PATIENT
  Age: 53 Year
  Sex: Male

DRUGS (8)
  1. LANSOPRAZOLE. [Concomitant]
     Active Substance: LANSOPRAZOLE
     Indication: PRODUCT USED FOR UNKNOWN INDICATION
     Dosage: UNK, UNKNOWN
     Route: 065
  2. LANSOPRAZOLE. [Concomitant]
     Active Substance: LANSOPRAZOLE
     Dosage: UNK, UNKNOWN
     Route: 065
  3. TAMSULOSIN [Concomitant]
     Active Substance: TAMSULOSIN
     Dosage: UNK, UNKNOWN
     Route: 065
  4. TAMSULOSIN [Concomitant]
     Active Substance: TAMSULOSIN
     Indication: BENIGN PROSTATIC HYPERPLASIA
     Dosage: UNK, UNKNOWN
     Route: 065
  5. TAMSULOSIN [Concomitant]
     Active Substance: TAMSULOSIN
     Dosage: UNK, UNKNOWN
     Route: 065
  6. LANSOPRAZOLE. [Concomitant]
     Active Substance: LANSOPRAZOLE
     Dosage: UNK, UNKNOWN
     Route: 065
  7. SOMATROPIN. [Suspect]
     Active Substance: SOMATROPIN
     Indication: MUSCLE BUILDING THERAPY
     Dosage: 6?WEEKS ON AND 4?WEEKS OFF REGIME FOR OVER 20 YEARS
     Route: 065
  8. TESTOSTERONE. [Suspect]
     Active Substance: TESTOSTERONE
     Indication: MUSCLE BUILDING THERAPY
     Dosage: 6?WEEKS ON AND 4?WEEKS OFF REGIME FOR OVER 20 YEARS
     Route: 065

REACTIONS (14)
  - Aortic stenosis [Unknown]
  - Rhabdomyolysis [Unknown]
  - Left ventricular hypertrophy [Unknown]
  - Renal impairment [Recovering/Resolving]
  - Myositis [Recovering/Resolving]
  - Chronic kidney disease [Recovering/Resolving]
  - Myocardial infarction [Fatal]
  - Hypercalcaemia [Recovering/Resolving]
  - Coronary artery disease [Unknown]
  - Focal segmental glomerulosclerosis [Recovering/Resolving]
  - Acute kidney injury [Recovering/Resolving]
  - Self-medication [Fatal]
  - Constipation [Unknown]
  - Off label use [Unknown]
